FAERS Safety Report 8836935 (Version 3)
Quarter: 2013Q4

REPORT INFORMATION
  Report Type: Report from Study
  Country: US (occurrence: US)
  Receive Date: 20121012
  Receipt Date: 20131030
  Transmission Date: 20140711
  Serious: Yes (Hospitalization)
  Sender: FDA-Public Use
  Company Number: US-ACTELION-A-NJ2012-72376

PATIENT
  Age: 55 Year
  Sex: Female

DRUGS (6)
  1. TRACLEER [Suspect]
     Indication: PULMONARY ARTERIAL HYPERTENSION
     Dosage: 125 MG, BID
     Route: 048
     Dates: start: 20120712
  2. TRACLEER [Suspect]
     Dosage: 62.5 MG, BID
     Route: 048
     Dates: start: 20120612, end: 20120711
  3. TYVASO [Concomitant]
  4. ALDACTONE [Concomitant]
  5. BUMEX [Concomitant]
  6. POTASSIUM [Concomitant]

REACTIONS (5)
  - Thyroid function test abnormal [Unknown]
  - Blood sodium decreased [Recovering/Resolving]
  - Dizziness [Recovering/Resolving]
  - Blood potassium abnormal [Recovering/Resolving]
  - Blood sodium abnormal [Recovering/Resolving]
